FAERS Safety Report 16538130 (Version 1)
Quarter: 2019Q3

REPORT INFORMATION
  Report Type: Spontaneous
  Country: US (occurrence: US)
  Receive Date: 20190708
  Receipt Date: 20190708
  Transmission Date: 20191004
  Serious: No
  Sender: FDA-Public Use
  Company Number: US-SA-2019SA178311

PATIENT

DRUGS (1)
  1. ALLEGRA [Suspect]
     Active Substance: FEXOFENADINE HYDROCHLORIDE

REACTIONS (6)
  - Pain [Unknown]
  - Nasopharyngitis [Unknown]
  - Nasal congestion [Unknown]
  - Secretion discharge [Unknown]
  - Fatigue [Unknown]
  - Feeling hot [Unknown]
